FAERS Safety Report 11770632 (Version 1)
Quarter: 2015Q4

REPORT INFORMATION
  Report Type: Spontaneous
  Country: JP (occurrence: JP)
  Receive Date: 20151123
  Receipt Date: 20151123
  Transmission Date: 20160304
  Serious: Yes (Death)
  Sender: FDA-Public Use
  Company Number: JP-MALLINCKRODT-T201505316

PATIENT
  Age: 56 Year
  Sex: Female
  Weight: 39 kg

DRUGS (19)
  1. METHADONE [Suspect]
     Active Substance: METHADONE HYDROCHLORIDE
     Dosage: 10 MG (30 MG DAILY DOSE)
     Route: 048
     Dates: start: 20150517, end: 20150523
  2. NEXIUM [Concomitant]
     Active Substance: ESOMEPRAZOLE MAGNESIUM
     Dosage: 20 MG
     Route: 048
     Dates: start: 20150515
  3. CELECOX [Concomitant]
     Active Substance: CELECOXIB
     Indication: ANALGESIC THERAPY
     Dosage: 400  MG
     Route: 048
     Dates: start: 20150602
  4. FENTANYL. [Concomitant]
     Active Substance: FENTANYL
     Dosage: 1.8 MG
     Route: 051
     Dates: start: 20150517, end: 20150518
  5. LYRICA [Concomitant]
     Active Substance: PREGABALIN
     Indication: ANALGESIC THERAPY
     Dosage: 300 MG
     Route: 048
     Dates: start: 20150519
  6. MAGMITT [Concomitant]
     Active Substance: MAGNESIUM OXIDE
     Dosage: 1000 MG
     Route: 048
  7. STRONTIUM [Concomitant]
     Active Substance: STRONTIUM
     Indication: ANALGESIC THERAPY
     Dosage: UNK
     Route: 042
     Dates: start: 20150702, end: 20150702
  8. MORPHINE HYDROCHLORIDE [Concomitant]
     Active Substance: MORPHINE HYDROCHLORIDE
     Indication: ANALGESIC THERAPY
     Dosage: 400 MG
     Route: 051
     Dates: start: 20150717, end: 20150722
  9. METHADONE [Suspect]
     Active Substance: METHADONE HYDROCHLORIDE
     Indication: CANCER PAIN
     Dosage: 5 MG (15 MG DAILY DOSE)
     Route: 048
     Dates: start: 20150516, end: 20150517
  10. KETALAR [Concomitant]
     Active Substance: KETAMINE HYDROCHLORIDE
     Indication: ANALGESIC THERAPY
     Dosage: 200 MG
     Route: 051
     Dates: start: 20150713, end: 20150716
  11. METHADONE [Suspect]
     Active Substance: METHADONE HYDROCHLORIDE
     Dosage: 20 MG (60 MG DAILY DOSE)
     Route: 048
     Dates: start: 20150602, end: 20150709
  12. METHADONE [Suspect]
     Active Substance: METHADONE HYDROCHLORIDE
     Dosage: 30 MG (90 MG DAILY DOSE)
     Route: 048
     Dates: start: 20150710, end: 20150722
  13. VOLTAREN [Concomitant]
     Active Substance: DICLOFENAC SODIUM
     Indication: ANALGESIC THERAPY
     Dosage: 25 MG PRN
     Route: 054
     Dates: start: 20150521
  14. FENTANYL. [Concomitant]
     Active Substance: FENTANYL
     Indication: ANALGESIC THERAPY
     Dosage: 0.05-0.15 MG PRN
     Route: 051
     Dates: start: 20150515
  15. FENTANYL. [Concomitant]
     Active Substance: FENTANYL
     Dosage: 3.6 MG
     Route: 051
     Dates: start: 20150516, end: 20150516
  16. VOLTAREN [Concomitant]
     Active Substance: DICLOFENAC SODIUM
     Dosage: 75 MG
     Route: 054
     Dates: start: 20150517, end: 20150519
  17. GABAPEN [Concomitant]
     Active Substance: GABAPENTIN
     Indication: ANALGESIC THERAPY
     Dosage: 600 MG
     Route: 048
     Dates: end: 20150516
  18. METHADONE [Suspect]
     Active Substance: METHADONE HYDROCHLORIDE
     Dosage: 15 MG (45 MG DAILY DOSE)
     Route: 048
     Dates: start: 20150523, end: 20150601
  19. OPSO [Concomitant]
     Active Substance: MORPHINE HYDROCHLORIDE
     Indication: ANALGESIC THERAPY
     Dosage: 20 MG PRN
     Route: 048
     Dates: start: 20150518

REACTIONS (1)
  - Breast cancer [Fatal]

NARRATIVE: CASE EVENT DATE: 20150729
